FAERS Safety Report 5977533-X (Version None)
Quarter: 2008Q4

REPORT INFORMATION
  Report Type: 
  Country: None (occurrence: None)
  Receive Date: 20081125
  Receipt Date: 20081113
  Transmission Date: 20090506
  Serious: Yes (Other)
  Sender: FDA-Public Use
  Company Number: 8039550

PATIENT
  Age: 34 Year
  Sex: Female

DRUGS (4)
  1. KEPPRA [Suspect]
     Indication: CONVULSION
     Dosage: 2500 MG /D PO
     Route: 048
     Dates: start: 20020101, end: 20081103
  2. KEPPRA [Suspect]
     Indication: CONVULSION
     Dosage: 3000 MG /D PO
     Route: 048
     Dates: start: 20081104
  3. VITAMIN TAB [Concomitant]
  4. FOLIC ACID [Concomitant]

REACTIONS (2)
  - ABORTION SPONTANEOUS [None]
  - DRUG EXPOSURE DURING PREGNANCY [None]
